FAERS Safety Report 10178902 (Version 1)
Quarter: 2014Q2

REPORT INFORMATION
  Report Type: Spontaneous
  Country: US (occurrence: US)
  Receive Date: 20140519
  Receipt Date: 20140519
  Transmission Date: 20141212
  Serious: No
  Sender: FDA-Public Use
  Company Number: US-BIOGENIDEC-2014BI040526

PATIENT
  Age: 48 Year
  Sex: Female

DRUGS (9)
  1. TECFIDERA [Suspect]
     Indication: MULTIPLE SCLEROSIS
     Route: 048
     Dates: start: 20130717
  2. CO-Q10 [Concomitant]
  3. GABAPENTIN [Concomitant]
  4. LEVOTHYROXINE SODIUM [Concomitant]
  5. MECLIZINE HCL [Concomitant]
  6. MOTRIN IB [Concomitant]
  7. TOPAMAX [Concomitant]
  8. VITAMIN B12 [Concomitant]
  9. VITAMIN D [Concomitant]

REACTIONS (2)
  - Abdominal distension [Unknown]
  - Alopecia [Unknown]
